FAERS Safety Report 5287339-5 (Version None)
Quarter: 2007Q1

REPORT INFORMATION
  Report Type: 
  Country: None (occurrence: None)
  Receive Date: 20070116
  Receipt Date: 20061213
  Transmission Date: 20070707
  Serious: No
  Sender: FDA-Public Use
  Company Number: 2006SP004386

PATIENT
  Sex: Female

DRUGS (3)
  1. LUNESTA [Suspect]
     Indication: INSOMNIA
     Dosage: 3 MG;HS;ORAL
     Route: 048
     Dates: start: 20060901, end: 20061122
  2. REQUIP [Suspect]
     Indication: PERIODIC LIMB MOVEMENT DISORDER
     Dates: start: 20060901
  3. PREVACID [Concomitant]

REACTIONS (2)
  - HEPATIC ENZYME ABNORMAL [None]
  - INSOMNIA [None]
